FAERS Safety Report 18224913 (Version 6)
Quarter: 2020Q4

REPORT INFORMATION
  Report Type: Spontaneous
  Country: US (occurrence: US)
  Receive Date: 20200902
  Receipt Date: 20201004
  Transmission Date: 20210113
  Serious: No
  Sender: FDA-Public Use
  Company Number: US-AMGEN-USASP2020141189

PATIENT
  Age: 58 Year
  Sex: Male
  Weight: 138.78 kg

DRUGS (3)
  1. NEULASTA [Suspect]
     Active Substance: PEGFILGRASTIM
     Dosage: 6 MILLIGRAM, Q2WK (EVERY 2 WEEKS)
     Route: 065
     Dates: start: 20200116
  2. NEULASTA [Suspect]
     Active Substance: PEGFILGRASTIM
     Indication: NEUTROPENIA
     Dosage: 6 MILLIGRAM, Q2WK (EVERY 2 WEEKS)
     Route: 065
     Dates: start: 20200116
  3. NEULASTA [Suspect]
     Active Substance: PEGFILGRASTIM
     Dosage: 6 MILLIGRAM, Q2WK (EVERY 2 WEEKS)
     Route: 065
     Dates: start: 20200116

REACTIONS (3)
  - Drug dose omission by device [Unknown]
  - Device use error [Unknown]
  - Device occlusion [Unknown]

NARRATIVE: CASE EVENT DATE: 202008
